FAERS Safety Report 9370234 (Version 1)
Quarter: 2013Q2

REPORT INFORMATION
  Report Type: Spontaneous
  Country: US (occurrence: None)
  Receive Date: 20130624
  Receipt Date: 20130624
  Transmission Date: 20140414
  Serious: Yes (Hospitalization)
  Sender: FDA-Public Use
  Company Number: IMP_06727_2013

PATIENT
  Age: 57 Year
  Sex: Male
  Weight: 92.1 kg

DRUGS (1)
  1. LORATADINE AND PSEUDOEPHEDRINE [Suspect]
     Indication: MULTIPLE ALLERGIES
     Route: 048
     Dates: start: 20130602, end: 20130604

REACTIONS (5)
  - Dizziness [None]
  - Nervousness [None]
  - Insomnia [None]
  - Dyspnoea [None]
  - Atrial flutter [None]
